FAERS Safety Report 5591282-1 (Version None)
Quarter: 2008Q1

REPORT INFORMATION
  Report Type: 
  Country: None (occurrence: None)
  Receive Date: 20080110
  Receipt Date: 20080110
  Transmission Date: 20080703
  Serious: Yes (Other)
  Sender: FDA-Public Use
  Company Number: None

PATIENT
  Age: 66 Year
  Sex: Female
  Weight: 50.8029 kg

DRUGS (2)
  1. ACTONEL [Suspect]
     Indication: OSTEOPOROSIS PROPHYLAXIS
     Dosage: ONE  Q. WEEK  PO
     Route: 048
     Dates: start: 20060301, end: 20071231
  2. FOSAMAX [Suspect]
     Indication: OSTEOPOROSIS PROPHYLAXIS
     Dosage: ONE  Q WEEK PO
     Route: 048
     Dates: start: 20060301, end: 20071231

REACTIONS (7)
  - ARTHRALGIA [None]
  - DISEASE PROGRESSION [None]
  - FATIGUE [None]
  - GAIT DISTURBANCE [None]
  - MUSCULOSKELETAL PAIN [None]
  - PAIN [None]
  - SCOLIOSIS [None]
